FAERS Safety Report 16264856 (Version 1)
Quarter: 2019Q2

REPORT INFORMATION
  Report Type: Spontaneous
  Country: RO (occurrence: RO)
  Receive Date: 20190502
  Receipt Date: 20190502
  Transmission Date: 20190711
  Serious: Yes (Other)
  Sender: FDA-Public Use
  Company Number: RO-PFIZER INC-2019182816

PATIENT
  Age: 55 Year
  Sex: Female
  Weight: 70 kg

DRUGS (2)
  1. AROMASIN [Suspect]
     Active Substance: EXEMESTANE
     Indication: BREAST CANCER
     Dosage: 25 MG, 1X/DAY
     Route: 048
     Dates: start: 20180917, end: 20190315
  2. ACID ZOLEDRONIC ACCORD [Concomitant]
     Dosage: UNK

REACTIONS (2)
  - Neoplasm progression [Unknown]
  - Oestradiol increased [Recovered/Resolved]

NARRATIVE: CASE EVENT DATE: 20181001
